FAERS Safety Report 14773645 (Version 1)
Quarter: 2018Q2

REPORT INFORMATION
  Report Type: Report from Study
  Country: CO (occurrence: CO)
  Receive Date: 20180418
  Receipt Date: 20180418
  Transmission Date: 20180711
  Serious: Yes (Other)
  Sender: FDA-Public Use
  Company Number: PHHY2018CO038147

PATIENT
  Age: 41 Year
  Sex: Female

DRUGS (1)
  1. AFINITOR [Suspect]
     Active Substance: EVEROLIMUS
     Indication: BREAST CANCER
     Dosage: 10 MG, QD
     Route: 048
     Dates: start: 20170913, end: 20180403

REACTIONS (4)
  - Hepatitis [Unknown]
  - Vomiting [Unknown]
  - Malaise [Unknown]
  - Drug resistance [Unknown]

NARRATIVE: CASE EVENT DATE: 20180105
